FAERS Safety Report 17051608 (Version 1)
Quarter: 2019Q4

REPORT INFORMATION
  Report Type: Spontaneous
  Country: US (occurrence: US)
  Receive Date: 20191120
  Receipt Date: 20191120
  Transmission Date: 20200122
  Serious: No
  Sender: FDA-Public Use
  Company Number: US-TEVA-2019-US-1137964

PATIENT
  Sex: Female

DRUGS (3)
  1. LACTAID [Concomitant]
     Active Substance: LACTASE
  2. DIAZEPAM. [Suspect]
     Active Substance: DIAZEPAM
     Indication: MENIERE^S DISEASE
     Dates: start: 2011
  3. DIAZEPAM. [Suspect]
     Active Substance: DIAZEPAM
     Indication: ANXIETY
     Dosage: DOSE INCREASED TO 11 MG PER DAY (8 MG MORNING AND 3 MG EVENING)
     Route: 065
     Dates: start: 2011

REACTIONS (1)
  - Abdominal discomfort [Unknown]

NARRATIVE: CASE EVENT DATE: 2011
